FAERS Safety Report 8378769-3 (Version None)
Quarter: 2012Q2

REPORT INFORMATION
  Report Type: 
  Country: None (occurrence: None)
  Receive Date: 20120522
  Receipt Date: 20120515
  Transmission Date: 20120825
  Serious: Yes (Hospitalization)
  Sender: FDA-Public Use
  Company Number: BR-ALLERGAN-1206535US

PATIENT
  Age: 32 Year
  Sex: Male

DRUGS (1)
  1. ATROPINE SULFATE [Suspect]
     Indication: PRODUCT USED FOR UNKNOWN INDICATION
     Dosage: 40 GTT, SINGLE
     Route: 048
     Dates: start: 20120507, end: 20120507

REACTIONS (5)
  - BRONCHOSPASM [None]
  - INCORRECT ROUTE OF DRUG ADMINISTRATION [None]
  - MUSCLE SPASMS [None]
  - CONFUSIONAL STATE [None]
  - AGITATION [None]
